FAERS Safety Report 4579463-7 (Version None)
Quarter: 2005Q1

REPORT INFORMATION
  Report Type: 
  Country: None (occurrence: None)
  Receive Date: 20050210
  Receipt Date: 20050210
  Transmission Date: 20050727
  Serious: Yes (Other)
  Sender: FDA-Public Use
  Company Number: None

PATIENT
  Sex: Male
  Weight: 73.64 kg

DRUGS (3)
  1. FLUOROURACIL [Suspect]
     Dosage: 1128 MG
     Dates: start: 20041206
  2. LEUCOVORIN [Suspect]
  3. RADIATION [Suspect]

REACTIONS (6)
  - ABDOMINAL PAIN [None]
  - ANOREXIA [None]
  - DIARRHOEA [None]
  - FATIGUE [None]
  - IMPAIRED GASTRIC EMPTYING [None]
  - INTESTINAL OBSTRUCTION [None]
